FAERS Safety Report 9822979 (Version 2)
Quarter: 2014Q1

REPORT INFORMATION
  Report Type: Spontaneous
  Country: US (occurrence: US)
  Receive Date: 20140116
  Receipt Date: 20140116
  Transmission Date: 20141002
  Serious: No
  Sender: FDA-Public Use
  Company Number: US-GILEAD-2010-0031082

PATIENT
  Sex: Female
  Weight: 97.07 kg

DRUGS (10)
  1. LETAIRIS [Suspect]
     Indication: PULMONARY ARTERIAL HYPERTENSION
     Route: 048
     Dates: start: 20100610
  2. CARVEDILOL [Concomitant]
  3. METOLAZONE [Concomitant]
  4. BUMEX [Concomitant]
  5. HYDRALAZINE [Concomitant]
  6. ATACAND [Concomitant]
  7. RENAGEL [Concomitant]
  8. ZEMPLAR [Concomitant]
  9. HYDROXYZINE [Concomitant]
  10. LEVOTHYROXINE [Concomitant]

REACTIONS (1)
  - Oedema [Unknown]
